FAERS Safety Report 24212259 (Version 2)
Quarter: 2024Q3

REPORT INFORMATION
  Report Type: Spontaneous
  Country: GR (occurrence: GR)
  Receive Date: 20240815
  Receipt Date: 20240916
  Transmission Date: 20241016
  Serious: Yes (Other)
  Sender: CELLTRION
  Company Number: GR-CELLTRION INC.-2024GR019302

PATIENT

DRUGS (4)
  1. INFLIXIMAB [Suspect]
     Active Substance: INFLIXIMAB
     Indication: Colitis ulcerative
     Dosage: 120 MG, Q2WEEKS
     Route: 058
     Dates: start: 20240528
  2. INFLIXIMAB [Suspect]
     Active Substance: INFLIXIMAB
     Dosage: LAST INJECTION; 120 MG, EVERY 2 WEEKS
     Route: 058
     Dates: start: 20240808
  3. CORTISONE [Concomitant]
     Active Substance: CORTISONE
     Indication: Diarrhoea
     Dosage: TAKING FOR THE LAST TWO WEEKS; CORTISONE TAPERING
  4. CORTISONE [Concomitant]
     Active Substance: CORTISONE
     Indication: Haematochezia

REACTIONS (4)
  - Haematochezia [Not Recovered/Not Resolved]
  - Diarrhoea [Recovered/Resolved]
  - Intentional product use issue [Unknown]
  - Drug ineffective [Unknown]

NARRATIVE: CASE EVENT DATE: 20240601
